FAERS Safety Report 6683448-4 (Version None)
Quarter: 2010Q2

REPORT INFORMATION
  Report Type: 
  Country: None (occurrence: None)
  Receive Date: 20100415
  Receipt Date: 20100406
  Transmission Date: 20101027
  Serious: Yes (Hospitalization, Other)
  Sender: FDA-Public Use
  Company Number: CA-ABBOTT-10P-028-0632341-00

PATIENT
  Sex: Female
  Weight: 63.56 kg

DRUGS (1)
  1. HUMIRA [Suspect]
     Indication: RHEUMATOID ARTHRITIS
     Dates: start: 20071126

REACTIONS (6)
  - BONE PAIN [None]
  - PAIN [None]
  - RESPIRATORY ARREST [None]
  - SPINAL FUSION SURGERY [None]
  - SPINAL OPERATION [None]
  - SPINAL VASCULAR DISORDER [None]
